FAERS Safety Report 13615411 (Version 2)
Quarter: 2017Q3

REPORT INFORMATION
  Report Type: Spontaneous
  Country: US (occurrence: US)
  Receive Date: 20170606
  Receipt Date: 20170725
  Transmission Date: 20171127
  Serious: No
  Sender: FDA-Public Use
  Company Number: US-PFIZER INC-2017243634

PATIENT
  Age: 74 Year
  Sex: Female
  Weight: 62.13 kg

DRUGS (19)
  1. SYNTHROID [Concomitant]
     Active Substance: LEVOTHYROXINE SODIUM
     Dosage: 125 UG, 1X/DAY
  2. VITAMIN C [Concomitant]
     Active Substance: ASCORBIC ACID
     Dosage: 1 DF, 1X/DAY
  3. FLUTICASONE. [Concomitant]
     Active Substance: FLUTICASONE
     Dosage: UNK, AS NEEDED (50 MCG/ACTUATION)
     Route: 045
  4. VALSARTAN. [Concomitant]
     Active Substance: VALSARTAN
     Dosage: 80 MG, 1X/DAY
  5. XELJANZ XR [Concomitant]
     Active Substance: TOFACITINIB CITRATE
     Indication: RHEUMATOID ARTHRITIS
     Dosage: 11 MG, DAILY
     Route: 048
  6. METHOTREXATE SODIUM. [Suspect]
     Active Substance: METHOTREXATE SODIUM
     Indication: RHEUMATOID ARTHRITIS
     Dosage: UNK
     Dates: end: 201701
  7. BLEPHAMIDE S.O.P. [Concomitant]
     Dosage: UNK, DAILY (PREDNISOLONE ACETATE: 0.2 %, SULFACETAMIDE SODIUM: 10 %) (BOTH EYES)
     Route: 047
  8. VITAMIN D3 [Concomitant]
     Active Substance: CHOLECALCIFEROL
     Dosage: 2000 IU, DAILY
  9. ETODOLAC. [Concomitant]
     Active Substance: ETODOLAC
     Dosage: 500 MG, AS NEEDED (1 TAB BID WITH FOOD)
  10. MAGNESIUM [Concomitant]
     Active Substance: MAGNESIUM
     Dosage: 200 MG, DAILY
  11. ERYTHROMYCIN. [Concomitant]
     Active Substance: ERYTHROMYCIN
     Dosage: UNK, 1X/DAY (5 MG/GRAM (0. 5 %) ) (BOTH EYES EVERY NIGHT)
     Route: 047
  12. CLOTRIMAZOLE AND BETAMETHASONE [Concomitant]
     Active Substance: BETAMETHASONE\CLOTRIMAZOLE
     Dosage: UNK, AS NEEDED (CLOTRIMAZOLE: 1%]/ [BETAMETHASONE: 0.05%) FOR 90 DAYS
     Route: 061
  13. LEVOCETIRIZINE [Concomitant]
     Active Substance: LEVOCETIRIZINE
     Dosage: 5 MG, 1X/DAY
  14. PILOCARPINE. [Concomitant]
     Active Substance: PILOCARPINE
     Dosage: 5 MG, 4X/DAY
  15. PROBIOTICS [Concomitant]
     Active Substance: PROBIOTICS NOS
     Dosage: 1 DF, 1X/DAY
  16. AZELASTINE [Concomitant]
     Active Substance: AZELASTINE
     Dosage: UNK, 1X/DAY (EVERY AM)
     Route: 047
  17. HYDROXYCHLOROQUINE [Concomitant]
     Active Substance: HYDROXYCHLOROQUINE
     Dosage: 400 MG, DAILY
  18. OMEPRAZOLE. [Concomitant]
     Active Substance: OMEPRAZOLE
     Dosage: 40 MG, 1X/DAY
  19. TRAMADOL. [Concomitant]
     Active Substance: TRAMADOL
     Dosage: 50 MG, AS NEEDED (EVERY 6 HOURS )
     Route: 048

REACTIONS (3)
  - Feeding disorder [Unknown]
  - Cough [Unknown]
  - Stomatitis [Unknown]
